FAERS Safety Report 5657828-X (Version None)
Quarter: 2008Q1

REPORT INFORMATION
  Report Type: 
  Country: None (occurrence: None)
  Receive Date: 20080305
  Receipt Date: 20080220
  Transmission Date: 20080703
  Serious: Yes (Hospitalization)
  Sender: FDA-Public Use
  Company Number: DSA_30156_2007

PATIENT
  Age: 62 Year
  Sex: Female
  Weight: 45 kg

DRUGS (1)
  1. ENALAPRIL MALEATE [Suspect]
     Indication: HYPERTENSION
     Dosage: 5 MG QD ORAL
     Route: 048

REACTIONS (2)
  - ANGIOEDEMA [None]
  - AORTIC VALVE STENOSIS [None]
